FAERS Safety Report 8251944-4 (Version None)
Quarter: 2012Q2

REPORT INFORMATION
  Report Type: 
  Country: None (occurrence: None)
  Receive Date: 20120402
  Receipt Date: 20120328
  Transmission Date: 20120825
  Serious: No
  Sender: FDA-Public Use
  Company Number: US-PFIZER INC-2012080315

PATIENT
  Sex: Female
  Weight: 72.562 kg

DRUGS (3)
  1. GEODON [Suspect]
     Indication: BIPOLAR DISORDER
     Dosage: 60 MG, DAILY
  2. IMITREX [Suspect]
     Indication: HEADACHE
     Dosage: 100 MG, AS NEEDED
     Dates: start: 20120101
  3. NAPROXEN (ALEVE) [Suspect]
     Indication: HEADACHE
     Dosage: 220 MG, 4X/DAY
     Dates: start: 20120101

REACTIONS (3)
  - HEADACHE [None]
  - BLOOD CALCIUM INCREASED [None]
  - ALOPECIA [None]
